FAERS Safety Report 8868741 (Version 1)
Quarter: 2012Q4

REPORT INFORMATION
  Report Type: 
  Country: US (occurrence: US)
  Receive Date: 20121026
  Receipt Date: 20121026
  Transmission Date: 20130627
  Serious: No
  Sender: FDA-Public Use
  Company Number: US-AMGEN-USASP2012047978

PATIENT
  Age: 66 Year
  Sex: Female

DRUGS (3)
  1. ENBREL [Suspect]
     Indication: RHEUMATOID ARTHRITIS
     Dosage: 50 mg, qwk
     Route: 058
     Dates: start: 201207
  2. PREDNISONE [Concomitant]
     Dosage: 5 mg, bid
     Dates: start: 201202
  3. METHOTREXATE [Concomitant]
     Dosage: 2.5 mg, qwk (Every Monday)
     Route: 048

REACTIONS (1)
  - Alopecia [Unknown]
